FAERS Safety Report 6910755-X (Version None)
Quarter: 2010Q3

REPORT INFORMATION
  Report Type: 
  Country: None (occurrence: None)
  Receive Date: 20100806
  Receipt Date: 20100726
  Transmission Date: 20110219
  Serious: Yes (Death)
  Sender: FDA-Public Use
  Company Number: PE-PFIZER INC-2010094033

PATIENT
  Age: 81 Year
  Sex: Female

DRUGS (1)
  1. NEURONTIN [Suspect]
     Dosage: 400 MG, 1X/DAY
     Route: 048
     Dates: start: 20090812

REACTIONS (1)
  - ASPHYXIA [None]
